FAERS Safety Report 24440551 (Version 1)
Quarter: 2024Q4

REPORT INFORMATION
  Report Type: Spontaneous
  Country: US (occurrence: US)
  Receive Date: 20241016
  Receipt Date: 20241016
  Transmission Date: 20250115
  Serious: No
  Sender: EMCURE PHARMACEUTICALS LTD
  Company Number: US-AVET LIFESCIENCES LTD-2024-AVET-000361

PATIENT

DRUGS (4)
  1. LITHIUM CARBONATE [Suspect]
     Active Substance: LITHIUM CARBONATE
     Indication: Product used for unknown indication
     Dosage: 300 MILLIGRAM, BID
     Route: 048
  2. LITHIUM CARBONATE [Suspect]
     Active Substance: LITHIUM CARBONATE
     Dosage: 600 MILLIGRAM, QD
     Route: 048
     Dates: end: 20241006
  3. LEVOTHYROXINE [Concomitant]
     Active Substance: LEVOTHYROXINE
     Indication: Hypothyroidism
     Dosage: 50 MCG
     Route: 065
  4. SIMVASTATIN [Concomitant]
     Active Substance: SIMVASTATIN
     Dosage: 20 MILLIGRAM, QD
     Route: 065

REACTIONS (2)
  - Tremor [Not Recovered/Not Resolved]
  - Drug level increased [Not Recovered/Not Resolved]
